FAERS Safety Report 6161419-4 (Version None)
Quarter: 2009Q2

REPORT INFORMATION
  Report Type: 
  Country: None (occurrence: None)
  Receive Date: 20090421
  Receipt Date: 20090406
  Transmission Date: 20091009
  Serious: Yes (Other)
  Sender: FDA-Public Use
  Company Number: US-BRISTOL-MYERS SQUIBB COMPANY-14575849

PATIENT
  Age: 73 Year
  Sex: Female
  Weight: 72 kg

DRUGS (3)
  1. CETUXIMAB [Suspect]
     Indication: TRANSITIONAL CELL CARCINOMA
     Dosage: TD,IV;START INF:29JAN09.
     Route: 042
     Dates: start: 20090311, end: 20090311
  2. CISPLATIN [Suspect]
     Indication: TRANSITIONAL CELL CARCINOMA
     Dates: start: 20090129, end: 20090226
  3. GEMZAR [Suspect]
     Indication: TRANSITIONAL CELL CARCINOMA
     Dates: start: 20090129, end: 20090226

REACTIONS (1)
  - PULMONARY EMBOLISM [None]
